FAERS Safety Report 11066168 (Version 2)
Quarter: 2015Q2

REPORT INFORMATION
  Report Type: Spontaneous
  Country: BR (occurrence: None)
  Receive Date: 20150423
  Receipt Date: 20150624
  Transmission Date: 20150821
  Serious: Yes (Other)
  Sender: FDA-Public Use
  Company Number: TPU2015-00170

PATIENT
  Age: 71 Year
  Sex: Female

DRUGS (6)
  1. TOPERMA [Suspect]
     Active Substance: LIDOCAINE
     Indication: ARTHRODESIS
     Route: 061
     Dates: start: 20150311
  2. TOPERMA [Suspect]
     Active Substance: LIDOCAINE
     Indication: ANALGESIC THERAPY
     Route: 061
     Dates: start: 20150311
  3. METHADONE [Suspect]
     Active Substance: METHADONE HYDROCHLORIDE
     Indication: ANALGESIC THERAPY
     Route: 048
     Dates: start: 20150311, end: 20150401
  4. AMITRIPTYLINE (AMITRIPTYLINE) [Suspect]
     Active Substance: AMITRIPTYLINE
     Indication: BACK PAIN
     Route: 048
     Dates: start: 20150311, end: 20150330
  5. LYRICA [Suspect]
     Active Substance: PREGABALIN
     Indication: NEURALGIA
     Route: 048
     Dates: start: 20150317, end: 20150411
  6. METHADONE [Suspect]
     Active Substance: METHADONE HYDROCHLORIDE
     Indication: PRODUCT USED FOR UNKNOWN INDICATION
     Route: 042
     Dates: start: 20150311, end: 20150328

REACTIONS (4)
  - Somnolence [None]
  - Depressed level of consciousness [None]
  - Unresponsive to stimuli [None]
  - Agitation [None]

NARRATIVE: CASE EVENT DATE: 20150311
